FAERS Safety Report 8081111-9 (Version None)
Quarter: 2012Q1

REPORT INFORMATION
  Report Type: 
  Country: None (occurrence: None)
  Receive Date: 20120130
  Receipt Date: 20120125
  Transmission Date: 20120608
  Serious: Yes (Death, Hospitalization)
  Sender: FDA-Public Use
  Company Number: US-GLAXOSMITHKLINE-A0857137A

PATIENT
  Age: 82 Year
  Sex: Male

DRUGS (1)
  1. AVANDIA [Suspect]
     Indication: DIABETES MELLITUS
     Dosage: 4MG PER DAY
     Route: 048
     Dates: start: 20020329, end: 20030501

REACTIONS (3)
  - PULMONARY OEDEMA [None]
  - MYOCARDIAL INFARCTION [None]
  - RESPIRATORY ARREST [None]
